FAERS Safety Report 20654966 (Version 1)
Quarter: 2022Q1

REPORT INFORMATION
  Report Type: Spontaneous
  Country: HR (occurrence: HR)
  Receive Date: 20220330
  Receipt Date: 20220330
  Transmission Date: 20220423
  Serious: Yes (Other)
  Sender: FDA-Public Use
  Company Number: None

PATIENT
  Age: 42 Year
  Sex: Female

DRUGS (7)
  1. ZELDOX [Suspect]
     Active Substance: ZIPRASIDONE
     Dosage: 400 MG, 1X/DAY
     Route: 048
     Dates: start: 20210928, end: 20210928
  2. ZOLOFT [Suspect]
     Active Substance: SERTRALINE HYDROCHLORIDE
     Dosage: 250 MG, 1X/DAY
     Route: 048
     Dates: start: 20210928, end: 20210928
  3. LEVOMEPROMAZINE MALEATE [Suspect]
     Active Substance: LEVOMEPROMAZINE MALEATE
     Dosage: 25 MG, 1X/DAY
     Route: 048
     Dates: start: 20210928, end: 20210928
  4. PROMAZINE HYDROCHLORIDE [Suspect]
     Active Substance: PROMAZINE HYDROCHLORIDE
     Dosage: 625 MG, 1X/DAY
     Route: 048
     Dates: start: 20210928, end: 20210928
  5. ZOLPIDEM TARTRATE [Suspect]
     Active Substance: ZOLPIDEM TARTRATE
     Dosage: 30 DF, 1X/DAY, 1 DF = 1 TABLET
     Route: 048
     Dates: start: 20210928, end: 20210928
  6. RISPERIDONE [Suspect]
     Active Substance: RISPERIDONE
     Dosage: 10 MG, 1X/DAY
     Route: 048
     Dates: start: 20210928, end: 20210928
  7. NAPROXEN SODIUM [Suspect]
     Active Substance: NAPROXEN SODIUM
     Dosage: 3300 MG, 1X/DAY
     Route: 048
     Dates: start: 20210928, end: 20210928

REACTIONS (3)
  - Intentional overdose [Unknown]
  - Hypotension [Unknown]
  - Suicide attempt [Unknown]

NARRATIVE: CASE EVENT DATE: 20210928
